FAERS Safety Report 10148868 (Version 1)
Quarter: 2014Q2

REPORT INFORMATION
  Report Type: Spontaneous
  Country: US (occurrence: US)
  Receive Date: 20140502
  Receipt Date: 20140502
  Transmission Date: 20141212
  Serious: No
  Sender: FDA-Public Use
  Company Number: US-009507513-1405USA000777

PATIENT
  Age: 23 Year
  Sex: 0
  Weight: 97.51 kg

DRUGS (3)
  1. NUVARING [Suspect]
     Dosage: UNK
     Route: 067
     Dates: start: 20140418, end: 20140424
  2. NUVARING [Suspect]
     Dosage: UNK
     Route: 067
     Dates: start: 20140427
  3. NUVARING [Suspect]
     Dosage: UNK
     Route: 067
     Dates: start: 2011

REACTIONS (2)
  - Device expulsion [Unknown]
  - Inappropriate schedule of drug administration [Unknown]
